FAERS Safety Report 5859827-1 (Version None)
Quarter: 2008Q3

REPORT INFORMATION
  Report Type: 
  Country: None (occurrence: None)
  Receive Date: 20080827
  Receipt Date: 20080818
  Transmission Date: 20090109
  Serious: Yes (Congenital Anomaly)
  Sender: FDA-Public Use
  Company Number: US-WATSON-2008-04959

PATIENT
  Sex: Female

DRUGS (6)
  1. PREDNISONE TAB [Suspect]
     Indication: PROPHYLAXIS AGAINST TRANSPLANT REJECTION
     Dosage: UNK
     Route: 065
     Dates: start: 20070101, end: 20080101
  2. FOLIC ACID [Suspect]
     Indication: DRUG USE FOR UNKNOWN INDICATION
     Dosage: UNK
     Route: 065
  3. MYCOPHENOLATE MOFETIL [Suspect]
     Indication: PROPHYLAXIS AGAINST TRANSPLANT REJECTION
     Dosage: UNK
     Route: 065
  4. TACROLIMUS [Suspect]
     Indication: PROPHYLAXIS AGAINST TRANSPLANT REJECTION
     Dosage: UNK
     Route: 065
  5. ANTIBIOTICS [Suspect]
     Indication: PROPHYLAXIS
     Dosage: UNK
     Route: 065
  6. PRENATAL VITAMINS                  /01549301/ [Suspect]
     Indication: SUPPLEMENTATION THERAPY
     Dosage: UNK
     Route: 065

REACTIONS (10)
  - CATARACT CONGENITAL [None]
  - CLEFT LIP AND PALATE [None]
  - CONGENITAL HAND MALFORMATION [None]
  - CONGENITAL MUSCULOSKELETAL ANOMALY [None]
  - DOUBLE OUTLET RIGHT VENTRICLE [None]
  - INTESTINAL MALROTATION [None]
  - MICROPHTHALMOS [None]
  - MICROTIA [None]
  - MITRAL VALVE STENOSIS [None]
  - VENTRICULAR HYPOPLASIA [None]
